FAERS Safety Report 15879739 (Version 2)
Quarter: 2019Q1

REPORT INFORMATION
  Report Type: Spontaneous
  Country: US (occurrence: US)
  Receive Date: 20190128
  Receipt Date: 20190221
  Transmission Date: 20190417
  Serious: No
  Sender: FDA-Public Use
  Company Number: US-TEVA-2018-US-993237

PATIENT
  Age: 48 Year
  Sex: Female

DRUGS (2)
  1. TRANSMUCOSAL FENTANYL CITRATE [Suspect]
     Active Substance: FENTANYL CITRATE
     Dosage: TRANSMUCOSAL
     Route: 065
  2. ACTIQ [Suspect]
     Active Substance: FENTANYL CITRATE
     Indication: PRODUCT USED FOR UNKNOWN INDICATION
     Route: 065

REACTIONS (4)
  - Tooth injury [Unknown]
  - Dental caries [Unknown]
  - Tooth fracture [Unknown]
  - Tooth infection [Unknown]
